FAERS Safety Report 8590587-X (Version None)
Quarter: 2012Q3

REPORT INFORMATION
  Report Type: 
  Country: None (occurrence: None)
  Receive Date: 20120813
  Receipt Date: 20120806
  Transmission Date: 20120928
  Serious: Yes (Hospitalization)
  Sender: FDA-Public Use
  Company Number: US-ABBOTT-12P-163-0965606-00

PATIENT
  Age: 33 Year
  Sex: Male

DRUGS (1)
  1. HUMIRA [Suspect]
     Indication: CROHN'S DISEASE
     Dosage: LOADING DOSE ONLY 160 MG ON 08 MAY 2012
     Dates: start: 20120508, end: 20120520

REACTIONS (3)
  - GASTROINTESTINAL TOXICITY [None]
  - INTESTINAL OBSTRUCTION [None]
  - GASTROINTESTINAL DISORDER POSTOPERATIVE [None]
